FAERS Safety Report 13002540 (Version 3)
Quarter: 2017Q1

REPORT INFORMATION
  Report Type: Spontaneous
  Country: GB (occurrence: GB)
  Receive Date: 20161206
  Receipt Date: 20170123
  Transmission Date: 20170428
  Serious: Yes (Hospitalization, Other)
  Sender: FDA-Public Use
  Company Number: GB-PFIZER INC-2016559962

PATIENT
  Age: 75 Year
  Sex: Male

DRUGS (11)
  1. NEURONTIN [Suspect]
     Active Substance: GABAPENTIN
     Indication: BURNING FEET SYNDROME
     Dosage: 300 MG, 2X/DAY
     Dates: start: 201504
  2. ASPIRIN /00002701/ [Concomitant]
     Active Substance: ASPIRIN
     Dosage: 75 MG, DAILY
  3. GLYCERYL TRINITRATE [Concomitant]
     Active Substance: NITROGLYCERIN
     Dosage: SPRAY
  4. ISOSORBIDE. [Concomitant]
     Active Substance: ISOSORBIDE
     Dosage: 2.5 MG, UNK
  5. SIMVASTATIN. [Concomitant]
     Active Substance: SIMVASTATIN
     Indication: CARDIAC DISORDER
     Dosage: UNK
     Dates: start: 2004
  6. METFORMIN [Concomitant]
     Active Substance: METFORMIN HYDROCHLORIDE
     Indication: DIABETES MELLITUS
     Dosage: 500 MG, DAILY
     Dates: start: 2006
  7. TAMSULOSIN [Concomitant]
     Active Substance: TAMSULOSIN
     Dosage: 400 MG, UNK
     Dates: start: 2004
  8. NEURONTIN [Suspect]
     Active Substance: GABAPENTIN
     Indication: RESTLESS LEGS SYNDROME
  9. RAMIPRIL. [Concomitant]
     Active Substance: RAMIPRIL
     Indication: CARDIAC DISORDER
     Dosage: 5 MG, DAILY
  10. RAMIPRIL. [Concomitant]
     Active Substance: RAMIPRIL
     Dosage: 2.5 MG, DAILY
  11. BISOPROL [Concomitant]
     Indication: CARDIAC DISORDER
     Dosage: 1.25 MG, DAILY (FOR 14 YEARS)

REACTIONS (1)
  - Myocardial infarction [Recovered/Resolved]

NARRATIVE: CASE EVENT DATE: 201603
